FAERS Safety Report 4685193-3 (Version None)
Quarter: 2005Q2

REPORT INFORMATION
  Report Type: 
  Country: None (occurrence: None)
  Receive Date: 20050608
  Receipt Date: 20041005
  Transmission Date: 20051028
  Serious: Yes (Other)
  Sender: FDA-Public Use
  Company Number: PHBS2004CH13240

PATIENT
  Age: 36 Year
  Sex: Female

DRUGS (3)
  1. IBUPROFEN [Suspect]
     Route: 065
  2. BEXTRA [Suspect]
     Route: 065
  3. AREDIA [Suspect]
     Indication: SAPHO SYNDROME
     Dosage: 30 MG, ONCE/SINGLE
     Route: 042
     Dates: start: 20040625, end: 20040625

REACTIONS (5)
  - ASEPTIC NECROSIS BONE [None]
  - GINGIVAL RECESSION [None]
  - GINGIVITIS [None]
  - ORAL SURGERY [None]
  - PERIODONTITIS [None]
